FAERS Safety Report 6830293-2 (Version None)
Quarter: 2010Q3

REPORT INFORMATION
  Report Type: 
  Country: None (occurrence: None)
  Receive Date: 20100712
  Receipt Date: 20100630
  Transmission Date: 20110219
  Serious: Yes (Hospitalization)
  Sender: FDA-Public Use
  Company Number: US-BIOGENIDEC-2010BI012691

PATIENT
  Age: 19 Year
  Sex: Male

DRUGS (2)
  1. AVONEX [Suspect]
     Indication: MULTIPLE SCLEROSIS
     Route: 030
     Dates: start: 20100302, end: 20100412
  2. MEDICATION (NOS) [Concomitant]

REACTIONS (5)
  - CONVULSION [None]
  - DYSPNOEA [None]
  - MULTIPLE SCLEROSIS [None]
  - RESPIRATORY ARREST [None]
  - STATUS EPILEPTICUS [None]
